FAERS Safety Report 21723282 (Version 1)
Quarter: 2022Q4

REPORT INFORMATION
  Report Type: Spontaneous
  Country: US (occurrence: None)
  Receive Date: 20221212
  Receipt Date: 20221212
  Transmission Date: 20230112
  Serious: Yes (Hospitalization)
  Sender: FDA-Public Use
  Company Number: None

PATIENT
  Age: 36 Year
  Sex: Female
  Weight: 119.7 kg

DRUGS (15)
  1. SAXENDA [Suspect]
     Active Substance: LIRAGLUTIDE
     Indication: Obesity
     Dosage: FREQUENCY : DAILY;?
     Route: 058
     Dates: start: 20221003, end: 20221119
  2. BUPROPION [Concomitant]
     Active Substance: BUPROPION
  3. CYCLOBENZAPRINE [Concomitant]
     Active Substance: CYCLOBENZAPRINE
  4. MELOXICAM [Concomitant]
     Active Substance: MELOXICAM
  5. OMEPRAZOLE [Concomitant]
     Active Substance: OMEPRAZOLE
  6. DULOXETINE [Concomitant]
     Active Substance: DULOXETINE
  7. CYCLOBENZAPRINE [Concomitant]
     Active Substance: CYCLOBENZAPRINE
  8. FAMOTIDINE [Concomitant]
     Active Substance: FAMOTIDINE
     Dates: start: 20220721
  9. FLONASE [Concomitant]
     Active Substance: FLUTICASONE PROPIONATE
  10. HYDROXYZINE [Concomitant]
     Active Substance: HYDROXYZINE HYDROCHLORIDE
  11. LORAZEPAM [Concomitant]
     Active Substance: LORAZEPAM
  12. ONDANSETRON [Concomitant]
     Active Substance: ONDANSETRON
  13. TIZANIDINE [Concomitant]
     Active Substance: TIZANIDINE
  14. ALBUTEROL [Concomitant]
     Active Substance: ALBUTEROL
  15. ACETAMINOPHEN [Concomitant]
     Active Substance: ACETAMINOPHEN

REACTIONS (6)
  - Nausea [None]
  - Vomiting [None]
  - Pancreatitis [None]
  - Leukocytosis [None]
  - Lipase increased [None]
  - Therapy cessation [None]

NARRATIVE: CASE EVENT DATE: 20221120
